FAERS Safety Report 17785518 (Version 1)
Quarter: 2020Q2

REPORT INFORMATION
  Report Type: Spontaneous
  Country: AU (occurrence: AU)
  Receive Date: 20200514
  Receipt Date: 20200514
  Transmission Date: 20200714
  Serious: Yes (Death, Hospitalization)
  Sender: FDA-Public Use
  Company Number: AU-MYLANLABS-2020M1047657

PATIENT
  Age: 77 Year
  Sex: Male

DRUGS (1)
  1. METHOTREXATE. [Suspect]
     Active Substance: METHOTREXATE
     Indication: PSORIASIS
     Dosage: 5 MILLIGRAM, QD FOR 5 DAYS
     Route: 048

REACTIONS (6)
  - Chronic kidney disease [Fatal]
  - End stage renal disease [Fatal]
  - Toxicity to various agents [Fatal]
  - Product prescribing error [Fatal]
  - Sepsis [Fatal]
  - Bone marrow failure [Fatal]
